FAERS Safety Report 14181239 (Version 2)
Quarter: 2017Q4

REPORT INFORMATION
  Report Type: Spontaneous
  Country: US (occurrence: US)
  Receive Date: 20171112
  Receipt Date: 20171112
  Transmission Date: 20180321
  Serious: No
  Sender: FDA-Public Use
  Company Number: US-BAUSCH-BL-2017-018103

PATIENT
  Age: 17 Year
  Sex: Female

DRUGS (3)
  1. ONEXTON [Suspect]
     Active Substance: BENZOYL PEROXIDE\CLINDAMYCIN PHOSPHATE
     Dosage: ONCE AT NIGHT AS NEEDED.
     Route: 061
     Dates: start: 201705, end: 201705
  2. ONEXTON [Suspect]
     Active Substance: BENZOYL PEROXIDE\CLINDAMYCIN PHOSPHATE
     Indication: ACNE
     Dosage: ONCE AT NIGHT AS NEEDED USED FOR TWO TIMES
     Route: 061
     Dates: start: 201705, end: 20170530
  3. ONEXTON [Suspect]
     Active Substance: BENZOYL PEROXIDE\CLINDAMYCIN PHOSPHATE
     Dosage: ONCE AT NIGHT AS NEEDED.
     Route: 061
     Dates: start: 201705, end: 201705

REACTIONS (3)
  - Eye swelling [Recovered/Resolved]
  - Application site rash [Recovered/Resolved]
  - Application site swelling [Recovered/Resolved]

NARRATIVE: CASE EVENT DATE: 201705
